FAERS Safety Report 5368401-5 (Version None)
Quarter: 2007Q2

REPORT INFORMATION
  Report Type: 
  Country: None (occurrence: None)
  Receive Date: 20070622
  Receipt Date: 20070622
  Transmission Date: 20071010
  Serious: Yes (Other)
  Sender: FDA-Public Use
  Company Number: None

PATIENT
  Age: 8 Year
  Sex: Male

DRUGS (1)
  1. COPPERTONE OIL FREE SPF 45 (AVOBENZONE/HOMOSALATE/OCTORYLENE/OCTISALAT [Suspect]
     Indication: DRUG USE FOR UNKNOWN INDICATION
     Dosage: TOP
     Route: 061

REACTIONS (3)
  - BLISTER [None]
  - RASH [None]
  - SWELLING FACE [None]
